FAERS Safety Report 7680786-3 (Version None)
Quarter: 2011Q3

REPORT INFORMATION
  Report Type: 
  Country: None (occurrence: None)
  Receive Date: 20110812
  Receipt Date: 20110804
  Transmission Date: 20111222
  Serious: Yes (Other)
  Sender: FDA-Public Use
  Company Number: US-BAYER-2011-037120

PATIENT
  Age: 20 Year
  Sex: Female
  Weight: 76.644 kg

DRUGS (3)
  1. YAZ [Suspect]
     Indication: CONTRACEPTION
     Dosage: UNK
     Route: 048
     Dates: start: 20061201, end: 20090301
  2. VERAPAMIL [Concomitant]
     Indication: HYPERTENSION
     Dosage: 120 MG, QD
     Route: 048
     Dates: start: 20060101
  3. YAZ [Suspect]
     Indication: MENSTRUAL CYCLE MANAGEMENT

REACTIONS (8)
  - ABDOMINAL DISCOMFORT [None]
  - ABDOMINAL PAIN [None]
  - INSOMNIA [None]
  - FLATULENCE [None]
  - SCAR [None]
  - CHOLELITHIASIS [None]
  - VOMITING [None]
  - NAUSEA [None]
